FAERS Safety Report 6434642-9 (Version None)
Quarter: 2009Q4

REPORT INFORMATION
  Report Type: 
  Country: None (occurrence: None)
  Receive Date: 20091110
  Receipt Date: 20091103
  Transmission Date: 20100525
  Serious: Yes (Hospitalization)
  Sender: FDA-Public Use
  Company Number: B0602813A

PATIENT
  Sex: Female
  Weight: 65.8 kg

DRUGS (2)
  1. LAPATINIB [Suspect]
     Indication: BREAST CANCER
     Dosage: 1500MG PER DAY
     Route: 048
     Dates: start: 20090806
  2. PACLITAXEL [Suspect]
     Indication: BREAST CANCER
     Dosage: 80MGM2 WEEKLY
     Route: 042
     Dates: start: 20090806, end: 20091027

REACTIONS (6)
  - ABDOMINAL PAIN UPPER [None]
  - ASTHENIA [None]
  - DECREASED APPETITE [None]
  - DYSPNOEA EXERTIONAL [None]
  - PYREXIA [None]
  - RASH [None]
